FAERS Safety Report 23416575 (Version 1)
Quarter: 2024Q1

REPORT INFORMATION
  Report Type: Spontaneous
  Country: US (occurrence: None)
  Receive Date: 20240117
  Receipt Date: 20240117
  Transmission Date: 20240409
  Serious: Yes (Death)
  Sender: FDA-Public Use
  Company Number: None

PATIENT
  Age: 76 Year
  Sex: Female

DRUGS (4)
  1. SIROLIMUS [Suspect]
     Active Substance: SIROLIMUS
     Indication: Organ transplant
     Dosage: FREQUENCY : DAILY;?
     Route: 048
     Dates: start: 20200212
  2. ASPIRIN [Concomitant]
     Active Substance: ASPIRIN
  3. FIBER ADULT GUMMIES [Concomitant]
  4. MULTIVITAMINS ADULTS [Concomitant]

REACTIONS (1)
  - Death [None]
